FAERS Safety Report 11520926 (Version 1)
Quarter: 2015Q3

REPORT INFORMATION
  Report Type: Spontaneous
  Country: US (occurrence: US)
  Receive Date: 20150918
  Receipt Date: 20150918
  Transmission Date: 20151125
  Serious: No
  Sender: FDA-Public Use
  Company Number: US-ROCHE-758681

PATIENT
  Age: 50 Year
  Sex: Male
  Weight: 117.9 kg

DRUGS (5)
  1. COPEGUS [Suspect]
     Active Substance: RIBAVIRIN
     Indication: HEPATITIS C
     Route: 048
  2. PEGASYS [Suspect]
     Active Substance: PEGINTERFERON ALFA-2A
     Indication: HEPATITIS C
     Dosage: FORM: PRE FILLED SYRINGE
     Route: 058
     Dates: start: 201006, end: 201012
  3. COPEGUS [Suspect]
     Active Substance: RIBAVIRIN
     Route: 048
  4. RIBAVIRIN. [Suspect]
     Active Substance: RIBAVIRIN
     Indication: HEPATITIS C
     Dosage: 3 TABLETS IN THE MORNING?2 TABLETS IN THE AFTERNOON
     Route: 065
  5. RIBAVIRIN. [Suspect]
     Active Substance: RIBAVIRIN
     Route: 065

REACTIONS (7)
  - Pyrexia [Unknown]
  - Red blood cell abnormality [Unknown]
  - Injection site reaction [Unknown]
  - Weight decreased [Unknown]
  - Rash [Recovering/Resolving]
  - Visual acuity reduced [Unknown]
  - White blood cell disorder [Unknown]

NARRATIVE: CASE EVENT DATE: 201006
